FAERS Safety Report 8763222 (Version 2)
Quarter: 2012Q4

REPORT INFORMATION
  Report Type: 
  Country: US (occurrence: US)
  Receive Date: 20120830
  Receipt Date: 20120905
  Transmission Date: 20130627
  Serious: Yes (Hospitalization)
  Sender: FDA-Public Use
  Company Number: US-BAYER-2012-088591

PATIENT
  Age: 19 Year
  Sex: Female
  Weight: 65.76 kg

DRUGS (8)
  1. YAZ [Suspect]
     Indication: ACNE
     Dosage: UNK
     Dates: start: 201002, end: 20100430
  2. YAZ [Suspect]
     Indication: ACNE
     Dosage: UNK
     Dates: start: 20100613, end: 20101203
  3. AMOXICILLIN [Concomitant]
     Dosage: UNK
  4. NSAID^S [Concomitant]
     Dosage: UNK UNK, PRN
     Dates: start: 20101104, end: 20101108
  5. APAP [Concomitant]
     Dosage: UNK
     Dates: start: 20101104, end: 20101108
  6. TUSSIONEX [Concomitant]
     Dosage: UNK;1 teaspoon every 8-12 hours
     Dates: start: 20101119
  7. ALKA-SELTZER PLUS COLD [ASA,CHLORPHENAM MAL,PHENYLPROPANOLAM BITAR [Concomitant]
     Dosage: UNK
     Dates: start: 20101119
  8. AUGMENTIN [Concomitant]
     Dosage: 875 -125 mg , BID
     Dates: start: 20101124

REACTIONS (9)
  - Pulmonary embolism [Recovered/Resolved]
  - Deep vein thrombosis [None]
  - Chest pain [Recovered/Resolved]
  - Anxiety [None]
  - Fear of disease [None]
  - Pain [None]
  - Injury [None]
  - General physical health deterioration [None]
  - Emotional distress [None]
